FAERS Safety Report 5430436-1 (Version None)
Quarter: 2007Q3

REPORT INFORMATION
  Report Type: 
  Country: None (occurrence: None)
  Receive Date: 20070830
  Receipt Date: 20070821
  Transmission Date: 20080115
  Serious: Yes (Other)
  Sender: FDA-Public Use
  Company Number: PHBS2007BR13932

PATIENT
  Sex: Female
  Weight: 60 kg

DRUGS (1)
  1. ELIDEL [Suspect]
     Indication: PIGMENTATION DISORDER
     Dosage: UNK, BID
     Route: 061

REACTIONS (2)
  - PAIN IN EXTREMITY [None]
  - SURGERY [None]
